FAERS Safety Report 24765591 (Version 1)
Quarter: 2024Q4

REPORT INFORMATION
  Report Type: Spontaneous
  Country: FR (occurrence: FR)
  Receive Date: 20241223
  Receipt Date: 20241223
  Transmission Date: 20250115
  Serious: Yes (Other)
  Sender: GRIFOLS
  Company Number: FR-IGSA-BIG0031831

PATIENT
  Age: 6 Year
  Sex: Male

DRUGS (1)
  1. XEMBIFY [Suspect]
     Active Substance: HUMAN IMMUNOGLOBULIN G
     Indication: Immunodeficiency
     Dosage: 2 GRAM, Q.WK.
     Route: 058
     Dates: start: 20240701, end: 20241023

REACTIONS (4)
  - Inflammation [Not Recovered/Not Resolved]
  - Hyperthermia [Recovering/Resolving]
  - Erythema [Recovering/Resolving]
  - Injection site ulcer [Recovering/Resolving]

NARRATIVE: CASE EVENT DATE: 20241001
